FAERS Safety Report 24166624 (Version 1)
Quarter: 2024Q3

REPORT INFORMATION
  Report Type: Spontaneous
  Country: CN (occurrence: CN)
  Receive Date: 20240802
  Receipt Date: 20240802
  Transmission Date: 20241016
  Serious: Yes (Hospitalization, Other)
  Sender: RANBAXY
  Company Number: CN-SUN PHARMACEUTICAL INDUSTRIES LTD-2024R1-460029

PATIENT
  Age: 61 Year
  Sex: Male

DRUGS (4)
  1. ASPIRIN [Suspect]
     Active Substance: ASPIRIN
     Indication: Prophylaxis
     Dosage: UNK
     Route: 048
  2. DILTIAZEM [Suspect]
     Active Substance: DILTIAZEM
     Indication: Prophylaxis
     Dosage: UNK
     Route: 065
  3. NITROGLYCERIN [Suspect]
     Active Substance: NITROGLYCERIN
     Indication: Stenosis
     Dosage: UNK
     Route: 065
  4. OLVEREMBATINIB [Suspect]
     Active Substance: OLVEREMBATINIB
     Indication: Neoplasm
     Dosage: 40 MILLIGRAM(EVERY OTHER DAY)
     Route: 065

REACTIONS (3)
  - Condition aggravated [Unknown]
  - Drug level increased [Unknown]
  - Arteriospasm coronary [Unknown]
